FAERS Safety Report 5125170-1 (Version None)
Quarter: 2006Q4

REPORT INFORMATION
  Report Type: 
  Country: None (occurrence: None)
  Receive Date: 20061010
  Receipt Date: 20061010
  Transmission Date: 20070319
  Serious: Yes (Hospitalization)
  Sender: FDA-Public Use
  Company Number: None

PATIENT
  Age: 64 Year
  Sex: Male

DRUGS (15)
  1. GLIPIZIDE [Suspect]
     Indication: DIABETES MELLITUS NON-INSULIN-DEPENDENT
     Dosage: 5 MG BID
     Dates: start: 20060301
  2. FOLIC ACID [Concomitant]
  3. ISOSORBIDE [Concomitant]
  4. ASPIRIN [Concomitant]
  5. FOSINOPRIL SODIUM [Concomitant]
  6. METOCOPRAMIDE [Concomitant]
  7. CODEINE [Concomitant]
  8. FUROSEMIDE [Concomitant]
  9. METOPROLOL TARTRATE [Concomitant]
  10. FELODIPINE [Concomitant]
  11. SUCRALFATE [Concomitant]
  12. . [Concomitant]
  13. SUCRALFATE [Concomitant]
  14. TERAZOSIN HCL [Concomitant]
  15. OMEPRAZOLE [Concomitant]

REACTIONS (1)
  - HYPOGLYCAEMIA [None]
